FAERS Safety Report 18664599 (Version 3)
Quarter: 2021Q1

REPORT INFORMATION
  Report Type: Spontaneous
  Country: GB (occurrence: GB)
  Receive Date: 20201225
  Receipt Date: 20210225
  Transmission Date: 20210419
  Serious: Yes (Other)
  Sender: FDA-Public Use
  Company Number: GB-BIOVITRUM-2020GB7891

PATIENT
  Age: 68 Year
  Sex: Male

DRUGS (83)
  1. DIHYDROCODEINE [Concomitant]
     Active Substance: DIHYDROCODEINE
     Dates: start: 2018
  2. TOSTRAN [Concomitant]
     Active Substance: TESTOSTERONE
     Dates: start: 2014
  3. TOSTRAN [Concomitant]
     Active Substance: TESTOSTERONE
     Dates: start: 2016
  4. NAPROXEN. [Concomitant]
     Active Substance: NAPROXEN
     Dates: start: 2013
  5. MOVICOL [Concomitant]
     Active Substance: POLYETHYLENE GLYCOL 3350\POTASSIUM CHLORIDE\SODIUM BICARBONATE\SODIUM CHLORIDE
     Dates: start: 2014
  6. RAMIPRIL. [Concomitant]
     Active Substance: RAMIPRIL
     Dosage: 5M
     Dates: start: 2016
  7. RAMIPRIL. [Concomitant]
     Active Substance: RAMIPRIL
     Dates: start: 2019
  8. ADCAL D3 [Concomitant]
     Active Substance: CALCIUM CARBONATE\CHOLECALCIFEROL
     Dates: start: 2016
  9. MACROGOL [Concomitant]
     Active Substance: POLYETHYLENE GLYCOLS
     Dates: start: 2015
  10. DIHYDROCODEINE [Concomitant]
     Active Substance: DIHYDROCODEINE
     Dates: start: 2014
  11. DIHYDROCODEINE [Concomitant]
     Active Substance: DIHYDROCODEINE
     Dates: start: 2017
  12. DIHYDROCODEINE [Concomitant]
     Active Substance: DIHYDROCODEINE
     Dates: start: 2019
  13. TOSTRAN [Concomitant]
     Active Substance: TESTOSTERONE
     Dates: start: 2015
  14. LANSOPRAZOLE. [Concomitant]
     Active Substance: LANSOPRAZOLE
     Dates: start: 2015
  15. NAPROXEN. [Concomitant]
     Active Substance: NAPROXEN
     Dates: start: 2015
  16. NAPROXEN. [Concomitant]
     Active Substance: NAPROXEN
     Dates: start: 2018
  17. APIXABAN [Concomitant]
     Active Substance: APIXABAN
     Dates: start: 2019
  18. KIRIN [Concomitant]
     Dates: start: 2018
  19. ORFADIN [Suspect]
     Active Substance: NITISINONE
     Indication: ALKAPTONURIA
     Dates: start: 2012
  20. ORFADIN [Suspect]
     Active Substance: NITISINONE
     Dates: start: 2013
  21. ORFADIN [Suspect]
     Active Substance: NITISINONE
     Dates: start: 2014
  22. ORFADIN [Suspect]
     Active Substance: NITISINONE
     Dates: start: 2018
  23. ANUSOL NOS [Concomitant]
     Active Substance: BALSAM PERU\BENZYL BENZOATE\BISMUTH HYDROXIDE\BISMUTH SUBGALLATE\HYDROCORTISONE ACETATE\ZINC OXIDE
     Dates: start: 2012
  24. LANSOPRAZOLE. [Concomitant]
     Active Substance: LANSOPRAZOLE
     Dates: start: 2013
  25. LANSOPRAZOLE. [Concomitant]
     Active Substance: LANSOPRAZOLE
     Dates: start: 2014
  26. LANSOPRAZOLE. [Concomitant]
     Active Substance: LANSOPRAZOLE
     Dates: start: 2019
  27. PRO ZERO [Concomitant]
     Dates: start: 2015
  28. RAMIPRIL. [Concomitant]
     Active Substance: RAMIPRIL
     Dates: start: 2014
  29. RAMIPRIL. [Concomitant]
     Active Substance: RAMIPRIL
     Dates: start: 2018
  30. QUININE SULFATE. [Concomitant]
     Active Substance: QUININE SULFATE
     Dates: start: 2018
  31. APIXABAN [Concomitant]
     Active Substance: APIXABAN
     Dates: start: 2018
  32. DICLOFENAC [Concomitant]
     Active Substance: DICLOFENAC
     Dates: start: 2012
  33. DIHYDROCODEINE [Concomitant]
     Active Substance: DIHYDROCODEINE
     Dates: start: 2016
  34. TOSTRAN [Concomitant]
     Active Substance: TESTOSTERONE
     Dates: start: 2012
  35. TOSTRAN [Concomitant]
     Active Substance: TESTOSTERONE
     Dates: start: 2017
  36. NAPROXEN. [Concomitant]
     Active Substance: NAPROXEN
     Dates: start: 2014
  37. RISEDRONATE [Concomitant]
     Active Substance: RISEDRONATE SODIUM
     Dates: start: 2013
  38. RISEDRONATE [Concomitant]
     Active Substance: RISEDRONATE SODIUM
     Dates: start: 2015
  39. RISEDRONATE [Concomitant]
     Active Substance: RISEDRONATE SODIUM
     Dates: start: 2016
  40. QUININE SULFATE. [Concomitant]
     Active Substance: QUININE SULFATE
     Dates: start: 2015
  41. QUININE SULFATE. [Concomitant]
     Active Substance: QUININE SULFATE
     Dates: start: 2016
  42. QUININE SULFATE. [Concomitant]
     Active Substance: QUININE SULFATE
     Dates: start: 2017
  43. ADCAL D3 [Concomitant]
     Active Substance: CALCIUM CARBONATE\CHOLECALCIFEROL
     Dates: start: 2015
  44. KIRIN [Concomitant]
     Dates: start: 2017
  45. ORFADIN [Suspect]
     Active Substance: NITISINONE
     Dates: start: 2017
  46. SUDOCREAM [Concomitant]
     Dates: start: 2012
  47. DIHYDROCODEINE [Concomitant]
     Active Substance: DIHYDROCODEINE
     Dates: start: 2012
  48. DIHYDROCODEINE [Concomitant]
     Active Substance: DIHYDROCODEINE
     Dates: start: 2013
  49. DIHYDROCODEINE [Concomitant]
     Active Substance: DIHYDROCODEINE
     Dates: start: 2015
  50. TOSTRAN [Concomitant]
     Active Substance: TESTOSTERONE
     Dates: start: 2019
  51. LANSOPRAZOLE. [Concomitant]
     Active Substance: LANSOPRAZOLE
     Dates: start: 2018
  52. PRO ZERO [Concomitant]
     Dates: start: 2013
  53. ADCAL D3 [Concomitant]
     Active Substance: CALCIUM CARBONATE\CHOLECALCIFEROL
     Dates: start: 2017
  54. ADCAL D3 [Concomitant]
     Active Substance: CALCIUM CARBONATE\CHOLECALCIFEROL
     Dates: start: 2019
  55. MACROGOL [Concomitant]
     Active Substance: POLYETHYLENE GLYCOLS
     Dates: start: 2018
  56. APIXABAN [Concomitant]
     Active Substance: APIXABAN
     Dates: start: 2016
  57. DENOSUMAB [Concomitant]
     Active Substance: DENOSUMAB
     Dates: start: 2017
  58. ORFADIN [Suspect]
     Active Substance: NITISINONE
     Dates: start: 2015
  59. ORFADIN [Suspect]
     Active Substance: NITISINONE
     Dates: start: 2016
  60. ORFADIN [Suspect]
     Active Substance: NITISINONE
     Dates: start: 2019
  61. DIHYDROCODEINE [Concomitant]
     Active Substance: DIHYDROCODEINE
     Dates: start: 2014
  62. TOSTRAN [Concomitant]
     Active Substance: TESTOSTERONE
     Dates: start: 2013
  63. TOSTRAN [Concomitant]
     Active Substance: TESTOSTERONE
     Dates: start: 2018
  64. MOVICOL [Concomitant]
     Active Substance: POLYETHYLENE GLYCOL 3350\POTASSIUM CHLORIDE\SODIUM BICARBONATE\SODIUM CHLORIDE
     Dates: start: 2013
  65. RISEDRONATE [Concomitant]
     Active Substance: RISEDRONATE SODIUM
     Dates: start: 2014
  66. RAMIPRIL. [Concomitant]
     Active Substance: RAMIPRIL
     Dates: start: 2015
  67. QUININE SULFATE. [Concomitant]
     Active Substance: QUININE SULFATE
     Dates: start: 2019
  68. MACROGOL [Concomitant]
     Active Substance: POLYETHYLENE GLYCOLS
     Dates: start: 2016
  69. MACROGOL [Concomitant]
     Active Substance: POLYETHYLENE GLYCOLS
     Dates: start: 2017
  70. BISOPROLOL [Concomitant]
     Active Substance: BISOPROLOL
     Dates: start: 2017
  71. BISOPROLOL [Concomitant]
     Active Substance: BISOPROLOL
     Dates: start: 2019
  72. DENOSUMAB [Concomitant]
     Active Substance: DENOSUMAB
     Dates: start: 2019
  73. OMEPRAZOLE. [Concomitant]
     Active Substance: OMEPRAZOLE
     Dates: start: 2012
  74. LANSOPRAZOLE. [Concomitant]
     Active Substance: LANSOPRAZOLE
     Dates: start: 2016
  75. NAPROXEN. [Concomitant]
     Active Substance: NAPROXEN
     Dates: start: 2017
  76. APIXABAN [Concomitant]
     Active Substance: APIXABAN
     Dates: start: 2017
  77. BISOPROLOL [Concomitant]
     Active Substance: BISOPROLOL
     Dates: start: 2018
  78. LANSOPRAZOLE. [Concomitant]
     Active Substance: LANSOPRAZOLE
     Dates: start: 2017
  79. NAPROXEN. [Concomitant]
     Active Substance: NAPROXEN
     Dates: start: 2016
  80. PRO ZERO [Concomitant]
     Dates: start: 2014
  81. RAMIPRIL. [Concomitant]
     Active Substance: RAMIPRIL
     Dates: start: 2017
  82. ADCAL D3 [Concomitant]
     Active Substance: CALCIUM CARBONATE\CHOLECALCIFEROL
     Dates: start: 2018
  83. DENOSUMAB [Concomitant]
     Active Substance: DENOSUMAB
     Dates: start: 2018

REACTIONS (5)
  - Meibomian gland dysfunction [Not Recovered/Not Resolved]
  - Visual impairment [Not Recovered/Not Resolved]
  - Lenticular opacities [Not Recovered/Not Resolved]
  - Amino acid level increased [Not Recovered/Not Resolved]
  - Cataract [Not Recovered/Not Resolved]

NARRATIVE: CASE EVENT DATE: 2013
